FAERS Safety Report 26082292 (Version 2)
Quarter: 2025Q4

REPORT INFORMATION
  Report Type: Spontaneous
  Country: CA (occurrence: CA)
  Receive Date: 20251124
  Receipt Date: 20251208
  Transmission Date: 20260117
  Serious: Yes (Death, Hospitalization)
  Sender: NOVARTIS
  Company Number: CA-002147023-NVSC2025CA179912

PATIENT
  Age: 89 Year
  Sex: Female

DRUGS (1)
  1. BEOVU [Suspect]
     Active Substance: BROLUCIZUMAB-DBLL
     Indication: Neovascular age-related macular degeneration
     Dosage: UNK (6MG/0.05 ML Q8 W, 120 MG/0.165 ML)
     Route: 031
     Dates: start: 20210712, end: 20250411

REACTIONS (1)
  - Death [Fatal]

NARRATIVE: CASE EVENT DATE: 20251113
